FAERS Safety Report 9132997 (Version 1)
Quarter: 2013Q1

REPORT INFORMATION
  Report Type: Spontaneous
  Country: KR (occurrence: KR)
  Receive Date: 20130128
  Receipt Date: 20130128
  Transmission Date: 20140127
  Serious: Yes (Other)
  Sender: FDA-Public Use
  Company Number: KR-PFIZER INC-2013028479

PATIENT
  Sex: Female

DRUGS (1)
  1. NORVASC [Suspect]
     Indication: HYPERTENSION
     Route: 048

REACTIONS (2)
  - Thyroid disorder [Unknown]
  - Cough [Unknown]
